FAERS Safety Report 24953999 (Version 1)
Quarter: 2025Q1

REPORT INFORMATION
  Report Type: Spontaneous
  Country: IN (occurrence: IN)
  Receive Date: 20250211
  Receipt Date: 20250211
  Transmission Date: 20250408
  Serious: Yes (Hospitalization)
  Sender: NOVITIUM PHARMA
  Company Number: IN-NOVITIUMPHARMA-2025INNVP00326

PATIENT
  Sex: Female

DRUGS (5)
  1. DEXAMETHASONE [Suspect]
     Active Substance: DEXAMETHASONE
     Indication: Angle closure glaucoma
     Route: 057
  2. GENTAMICIN [Concomitant]
     Active Substance: GENTAMICIN
     Indication: Angle closure glaucoma
     Route: 057
  3. MITOMYCIN [Concomitant]
     Active Substance: MITOMYCIN
     Indication: Angle closure glaucoma
  4. CIPROFLOXACIN [Concomitant]
     Active Substance: CIPROFLOXACIN
     Indication: Product used for unknown indication
  5. BRIMONIDINE [Concomitant]
     Active Substance: BRIMONIDINE TARTRATE
     Indication: Product used for unknown indication

REACTIONS (2)
  - Dysaesthesia [Recovering/Resolving]
  - Product administered at inappropriate site [Unknown]
